FAERS Safety Report 10019658 (Version 1)
Quarter: 2014Q1

REPORT INFORMATION
  Report Type: Spontaneous
  Country: PT (occurrence: PT)
  Receive Date: 20140318
  Receipt Date: 20140318
  Transmission Date: 20141002
  Serious: Yes (Hospitalization, Other)
  Sender: FDA-Public Use
  Company Number: PT-BAXTER-2014BAX011912

PATIENT
  Age: 30 Year
  Sex: Female

DRUGS (13)
  1. SEVOFLURANO BAXTER 100% L?QUIDO PARA INALA??O POR VAPORIZA??O [Suspect]
     Indication: GENERAL ANAESTHESIA
     Route: 065
  2. HYDROCORTISONE [Suspect]
     Indication: PRODUCT USED FOR UNKNOWN INDICATION
     Dosage: PREOPERATIVELY
     Route: 042
  3. PENTOTHAL [Suspect]
     Indication: GENERAL ANAESTHESIA
     Route: 065
  4. SUXAMETHONIUM [Suspect]
     Indication: GENERAL ANAESTHESIA
     Route: 065
  5. ROCURONIUM [Suspect]
     Indication: GENERAL ANAESTHESIA
     Route: 065
  6. FENTANYL [Suspect]
     Indication: PRODUCT USED FOR UNKNOWN INDICATION
     Dosage: 100 UG
     Route: 065
  7. OXYTOCIN [Suspect]
     Indication: PRODUCT USED FOR UNKNOWN INDICATION
     Route: 065
  8. CEFOXITIN [Suspect]
     Indication: PRODUCT USED FOR UNKNOWN INDICATION
     Route: 065
  9. PARACETAMOL [Suspect]
     Indication: ANALGESIC THERAPY
     Route: 065
  10. METAMIZOLE [Suspect]
     Indication: ANALGESIC THERAPY
     Route: 065
  11. TRAMADOL [Suspect]
     Indication: ANALGESIC THERAPY
     Route: 065
  12. SUGAMMADEX [Suspect]
     Indication: NEUROMUSCULAR BLOCKADE
     Route: 065
  13. PREDNISOLONE [Concomitant]
     Indication: PRODUCT USED FOR UNKNOWN INDICATION
     Route: 065

REACTIONS (2)
  - Exposure during pregnancy [Recovered/Resolved]
  - Adrenocortical insufficiency acute [Unknown]
